FAERS Safety Report 7322333-1 (Version None)
Quarter: 2011Q1

REPORT INFORMATION
  Report Type: 
  Country: None (occurrence: None)
  Receive Date: 20110301
  Receipt Date: 20110217
  Transmission Date: 20110831
  Serious: No
  Sender: FDA-Public Use
  Company Number: US-BIOGENIDEC-2011BI006660

PATIENT
  Age: 57 Year
  Sex: Female

DRUGS (2)
  1. TYSABRI [Suspect]
     Indication: MULTIPLE SCLEROSIS
     Route: 042
     Dates: start: 20100831
  2. TYSABRI [Suspect]
     Route: 042
     Dates: start: 20050222, end: 20050222

REACTIONS (9)
  - BALANCE DISORDER [None]
  - JOINT INJURY [None]
  - BACK INJURY [None]
  - SKELETAL INJURY [None]
  - SWELLING [None]
  - RIB FRACTURE [None]
  - HEADACHE [None]
  - HEAD INJURY [None]
  - FALL [None]
